FAERS Safety Report 11729755 (Version 1)
Quarter: 2015Q4

REPORT INFORMATION
  Report Type: Spontaneous
  Country: BR (occurrence: BR)
  Receive Date: 20151112
  Receipt Date: 20151112
  Transmission Date: 20160304
  Serious: Yes (Other)
  Sender: FDA-Public Use
  Company Number: BR-PFIZER INC-2015381370

PATIENT
  Age: 17 Year
  Sex: Female
  Weight: 85 kg

DRUGS (1)
  1. DOSTINEX [Suspect]
     Active Substance: CABERGOLINE
     Indication: BLOOD PROLACTIN INCREASED
     Dosage: 1 TABLET OF 0.5 MG, PER WEEK
     Route: 048
     Dates: start: 2014

REACTIONS (1)
  - Pituitary tumour benign [Unknown]
